FAERS Safety Report 20420077 (Version 1)
Quarter: 2022Q1

REPORT INFORMATION
  Report Type: Report from Study
  Country: US (occurrence: None)
  Receive Date: 20220203
  Receipt Date: 20220203
  Transmission Date: 20220423
  Serious: Yes (Hospitalization)
  Sender: FDA-Public Use
  Company Number: US-ROCHE-2897733

PATIENT

DRUGS (2)
  1. TRASTUZUMAB [Suspect]
     Active Substance: TRASTUZUMAB
     Indication: Plasma cell myeloma
     Dosage: 600 MG/DOSE
     Route: 058
     Dates: start: 20210803, end: 20210813
  2. TUCATINIB [Suspect]
     Active Substance: TUCATINIB
     Indication: Plasma cell myeloma
     Route: 048
     Dates: start: 20210803, end: 20210813

REACTIONS (1)
  - Sepsis [Recovered/Resolved]

NARRATIVE: CASE EVENT DATE: 20210813
